FAERS Safety Report 9889780 (Version 1)
Quarter: 2014Q1

REPORT INFORMATION
  Report Type: Spontaneous
  Country: IT (occurrence: IT)
  Receive Date: 20140212
  Receipt Date: 20140212
  Transmission Date: 20141002
  Serious: Yes (Hospitalization)
  Sender: FDA-Public Use
  Company Number: IT-ROCHE-1346337

PATIENT
  Age: 37 Year
  Sex: Male

DRUGS (2)
  1. VALIUM [Suspect]
     Indication: MAJOR DEPRESSION
     Route: 048
     Dates: start: 20131014, end: 20131014
  2. PROZIN [Suspect]
     Indication: MAJOR DEPRESSION
     Route: 065
     Dates: start: 20131014, end: 20131014

REACTIONS (2)
  - Asthenia [Unknown]
  - Pallor [Unknown]
